FAERS Safety Report 9241149 (Version 1)
Quarter: 2013Q2

REPORT INFORMATION
  Report Type: Spontaneous
  Country: US (occurrence: US)
  Receive Date: 20130419
  Receipt Date: 20130419
  Transmission Date: 20140414
  Serious: Yes (Other)
  Sender: FDA-Public Use
  Company Number: US-GENZYME-CERZ-1002887

PATIENT
  Sex: 0

DRUGS (1)
  1. CEREZYME [Suspect]
     Indication: GAUCHER^S DISEASE
     Dosage: 4000 U, UNK
     Route: 042
     Dates: start: 1999

REACTIONS (2)
  - Cholelithiasis [Unknown]
  - Cyst [Unknown]
